FAERS Safety Report 21300347 (Version 1)
Quarter: 2022Q3

REPORT INFORMATION
  Report Type: Spontaneous
  Country: CA (occurrence: CA)
  Receive Date: 20220907
  Receipt Date: 20220907
  Transmission Date: 20221026
  Serious: Yes (Congenital Anomaly)
  Sender: FDA-Public Use
  Company Number: CA-BRISTOL-MYERS SQUIBB COMPANY-2022-092621

PATIENT

DRUGS (76)
  1. ORENCIA [Suspect]
     Active Substance: ABATACEPT
     Indication: Product used for unknown indication
     Route: 064
  2. ORENCIA [Suspect]
     Active Substance: ABATACEPT
     Route: 064
  3. ACTEMRA [Concomitant]
     Active Substance: TOCILIZUMAB
     Indication: Product used for unknown indication
     Route: 064
  4. ACTEMRA [Concomitant]
     Active Substance: TOCILIZUMAB
     Route: 064
  5. ACTEMRA [Concomitant]
     Active Substance: TOCILIZUMAB
     Route: 064
  6. LEFLUNOMIDE [Concomitant]
     Active Substance: LEFLUNOMIDE
     Indication: Product used for unknown indication
     Route: 064
  7. LEFLUNOMIDE [Concomitant]
     Active Substance: LEFLUNOMIDE
     Route: 064
  8. PREDNISONE [Concomitant]
     Active Substance: PREDNISONE
     Indication: Product used for unknown indication
     Route: 064
  9. ARAVA [Concomitant]
     Active Substance: LEFLUNOMIDE
     Indication: Product used for unknown indication
     Route: 064
  10. ARAVA [Concomitant]
     Active Substance: LEFLUNOMIDE
     Route: 064
  11. CETIRIZINE [Concomitant]
     Active Substance: CETIRIZINE HYDROCHLORIDE
     Indication: Product used for unknown indication
     Route: 064
  12. CETIRIZINE [Concomitant]
     Active Substance: CETIRIZINE HYDROCHLORIDE
     Route: 064
  13. CETIRIZINE HYDROCHLORIDE [Concomitant]
     Active Substance: CETIRIZINE HYDROCHLORIDE
     Indication: Product used for unknown indication
     Route: 064
  14. CIMZIA [Concomitant]
     Active Substance: CERTOLIZUMAB PEGOL
     Indication: Product used for unknown indication
     Route: 064
  15. CIMZIA [Concomitant]
     Active Substance: CERTOLIZUMAB PEGOL
     Route: 064
  16. CORTISONE ACETATE [Concomitant]
     Active Substance: CORTISONE ACETATE
     Indication: Product used for unknown indication
     Route: 064
  17. DESOXIMETASONE [Concomitant]
     Active Substance: DESOXIMETASONE
     Indication: Product used for unknown indication
     Route: 064
  18. DICLOFENAC SODIUM [Concomitant]
     Active Substance: DICLOFENAC SODIUM
     Indication: Product used for unknown indication
     Route: 064
  19. DICLOFENAC SODIUM [Concomitant]
     Active Substance: DICLOFENAC SODIUM
     Route: 064
  20. ENBREL [Concomitant]
     Active Substance: ETANERCEPT
     Indication: Product used for unknown indication
     Route: 064
  21. ENBREL [Concomitant]
     Active Substance: ETANERCEPT
     Route: 064
  22. ENBREL [Concomitant]
     Active Substance: ETANERCEPT
     Route: 064
  23. ENBREL [Concomitant]
     Active Substance: ETANERCEPT
     Route: 064
  24. FOLIC ACID [Concomitant]
     Active Substance: FOLIC ACID
     Indication: Product used for unknown indication
     Route: 064
  25. FOSAMAX [Concomitant]
     Active Substance: ALENDRONATE SODIUM
     Indication: Product used for unknown indication
     Route: 064
  26. HUMIRA [Concomitant]
     Active Substance: ADALIMUMAB
     Indication: Product used for unknown indication
     Route: 064
  27. HUMIRA [Concomitant]
     Active Substance: ADALIMUMAB
     Route: 064
  28. HUMIRA [Concomitant]
     Active Substance: ADALIMUMAB
     Route: 064
  29. HUMIRA [Concomitant]
     Active Substance: ADALIMUMAB
     Route: 064
  30. HYDROXYCHLOROQUINE [Concomitant]
     Active Substance: HYDROXYCHLOROQUINE
     Indication: Product used for unknown indication
     Route: 064
  31. HYDROXYCHLOROQUINE [Concomitant]
     Active Substance: HYDROXYCHLOROQUINE
     Route: 064
  32. HYDROXYCHLOROQUINE [Concomitant]
     Active Substance: HYDROXYCHLOROQUINE
     Route: 064
  33. HYDROXYCHLOROQUINE SULFATE [Concomitant]
     Active Substance: HYDROXYCHLOROQUINE SULFATE
     Indication: Product used for unknown indication
     Route: 064
  34. HYDROXYCHLOROQUINE SULFATE [Concomitant]
     Active Substance: HYDROXYCHLOROQUINE SULFATE
     Route: 064
  35. HYDROXYCHLOROQUINE SULFATE [Concomitant]
     Active Substance: HYDROXYCHLOROQUINE SULFATE
     Route: 064
  36. INFLIXIMAB [Concomitant]
     Active Substance: INFLIXIMAB
     Indication: Product used for unknown indication
     Route: 064
  37. LEFLUNOMIDE [Concomitant]
     Active Substance: LEFLUNOMIDE
     Indication: Product used for unknown indication
     Route: 064
  38. METHOTREXATE [Concomitant]
     Active Substance: METHOTREXATE
     Indication: Product used for unknown indication
     Route: 064
  39. METHOTREXATE [Concomitant]
     Active Substance: METHOTREXATE
     Route: 064
  40. METHOTREXATE [Concomitant]
     Active Substance: METHOTREXATE
     Route: 064
  41. METHOTREXATE [Concomitant]
     Active Substance: METHOTREXATE
     Route: 064
  42. METHOTREXATE [Concomitant]
     Active Substance: METHOTREXATE
     Route: 064
  43. METHOTREXATE [Concomitant]
     Active Substance: METHOTREXATE
     Route: 064
  44. METHOTREXATE [Concomitant]
     Active Substance: METHOTREXATE
     Route: 064
  45. METHOTREXATE [Concomitant]
     Active Substance: METHOTREXATE
     Route: 064
  46. PHTHALYLSULFATHIAZOLE [Concomitant]
     Active Substance: PHTHALYLSULFATHIAZOLE
     Indication: Product used for unknown indication
     Route: 064
  47. PREDNISONE [Concomitant]
     Active Substance: PREDNISONE
     Indication: Product used for unknown indication
     Route: 064
  48. PREDNISONE [Concomitant]
     Active Substance: PREDNISONE
     Route: 064
  49. PSEUDOEPHEDRINE HYDROCHLORIDE [Concomitant]
     Active Substance: PSEUDOEPHEDRINE HYDROCHLORIDE
     Indication: Product used for unknown indication
     Route: 064
  50. REMICADE [Concomitant]
     Active Substance: INFLIXIMAB
     Indication: Product used for unknown indication
     Route: 064
  51. REMICADE [Concomitant]
     Active Substance: INFLIXIMAB
     Route: 064
  52. REMICADE [Concomitant]
     Active Substance: INFLIXIMAB
     Route: 064
  53. REMICADE [Concomitant]
     Active Substance: INFLIXIMAB
     Route: 064
  54. REMICADE [Concomitant]
     Active Substance: INFLIXIMAB
     Route: 064
  55. REMICADE [Concomitant]
     Active Substance: INFLIXIMAB
     Route: 064
  56. REMICADE [Concomitant]
     Active Substance: INFLIXIMAB
     Route: 064
  57. RITUXIMAB [Concomitant]
     Active Substance: RITUXIMAB
     Indication: Product used for unknown indication
     Route: 064
  58. RITUXIMAB [Concomitant]
     Active Substance: RITUXIMAB
     Route: 064
  59. RITUXIMAB [Concomitant]
     Active Substance: RITUXIMAB
     Route: 064
  60. RITUXIMAB [Concomitant]
     Active Substance: RITUXIMAB
     Route: 064
  61. RITUXIMAB [Concomitant]
     Active Substance: RITUXIMAB
     Route: 064
  62. HYALURONIDASE (HUMAN RECOMBINANT)\RITUXIMAB [Concomitant]
     Active Substance: HYALURONIDASE (HUMAN RECOMBINANT)\RITUXIMAB
     Indication: Product used for unknown indication
     Route: 064
  63. HYALURONIDASE (HUMAN RECOMBINANT)\RITUXIMAB [Concomitant]
     Active Substance: HYALURONIDASE (HUMAN RECOMBINANT)\RITUXIMAB
     Route: 064
  64. SIMPONI [Concomitant]
     Active Substance: GOLIMUMAB
     Indication: Product used for unknown indication
     Route: 064
  65. SIMPONI [Concomitant]
     Active Substance: GOLIMUMAB
     Route: 064
  66. SIMPONI [Concomitant]
     Active Substance: GOLIMUMAB
     Route: 064
  67. SIMPONI [Concomitant]
     Active Substance: GOLIMUMAB
     Route: 064
  68. SULFASALAZINE [Concomitant]
     Active Substance: SULFASALAZINE
     Indication: Product used for unknown indication
     Route: 064
  69. SULFASALAZINE [Concomitant]
     Active Substance: SULFASALAZINE
     Route: 064
  70. SULFASALAZINE [Concomitant]
     Active Substance: SULFASALAZINE
     Route: 064
  71. SULFASALAZINE [Concomitant]
     Active Substance: SULFASALAZINE
     Route: 064
  72. XELJANZ [Concomitant]
     Active Substance: TOFACITINIB CITRATE
     Indication: Product used for unknown indication
     Route: 064
  73. XELJANZ [Concomitant]
     Active Substance: TOFACITINIB CITRATE
     Dosage: 2 EVERY 1 DAYS
     Route: 064
  74. XELJANZ [Concomitant]
     Active Substance: TOFACITINIB CITRATE
     Route: 064
  75. XELJANZ [Concomitant]
     Active Substance: TOFACITINIB CITRATE
     Route: 064
  76. XELJANZ [Concomitant]
     Active Substance: TOFACITINIB CITRATE
     Route: 064

REACTIONS (2)
  - Foetal exposure during pregnancy [Unknown]
  - Congenital anomaly [Unknown]
